FAERS Safety Report 26067705 (Version 3)
Quarter: 2025Q4

REPORT INFORMATION
  Report Type: Spontaneous
  Country: JP (occurrence: JP)
  Receive Date: 20251120
  Receipt Date: 20251225
  Transmission Date: 20260117
  Serious: Yes (Other)
  Sender: TAKEDA
  Company Number: JP-TAKEDA-2025TJP011814

PATIENT
  Age: 6 Decade
  Sex: Female

DRUGS (1)
  1. FRUZAQLA [Suspect]
     Active Substance: FRUQUINTINIB
     Indication: Colon cancer
     Dosage: 3 MILLIGRAM

REACTIONS (4)
  - Neuropathy peripheral [Not Recovered/Not Resolved]
  - Skin disorder [Recovering/Resolving]
  - Stoma site haemorrhage [Not Recovered/Not Resolved]
  - Hypertension [Recovering/Resolving]
